FAERS Safety Report 8481443-6 (Version None)
Quarter: 2012Q2

REPORT INFORMATION
  Report Type: 
  Country: None (occurrence: None)
  Receive Date: 20120626
  Receipt Date: 20120626
  Transmission Date: 20120825
  Serious: Yes (Other)
  Sender: FDA-Public Use
  Company Number: None

PATIENT
  Age: 37 Year
  Sex: Female

DRUGS (1)
  1. LUPRON DEPOT [Suspect]
     Indication: ENDOMETRIOSIS
     Dosage: 3.75MG Q MONTH IM
     Route: 030
     Dates: start: 20120601

REACTIONS (4)
  - PERIPHERAL COLDNESS [None]
  - INSOMNIA [None]
  - PALPITATIONS [None]
  - HEART RATE INCREASED [None]
